FAERS Safety Report 5326464-7 (Version None)
Quarter: 2007Q2

REPORT INFORMATION
  Report Type: 
  Country: None (occurrence: None)
  Receive Date: 20070516
  Receipt Date: 20070508
  Transmission Date: 20071010
  Serious: Yes (Disabling, Other)
  Sender: FDA-Public Use
  Company Number: US-ROCHE-483750

PATIENT
  Age: 61 Year
  Sex: Male
  Weight: 91.6 kg

DRUGS (1)
  1. PEGASYS [Suspect]
     Route: 058
     Dates: start: 20061025, end: 20061209

REACTIONS (3)
  - FATIGUE [None]
  - HEPATITIS B [None]
  - TRANSAMINASES INCREASED [None]
